FAERS Safety Report 8901187 (Version 1)
Quarter: 2012Q4

REPORT INFORMATION
  Report Type: Report from Study
  Country: GB (occurrence: GB)
  Receive Date: 20121109
  Receipt Date: 20121109
  Transmission Date: 20130627
  Serious: Yes (Other)
  Sender: FDA-Public Use
  Company Number: GB-ROCHE-CID000000002221736

PATIENT
  Age: 71 Year
  Sex: Female

DRUGS (2)
  1. RITUXIMAB [Suspect]
     Indication: PRODUCT USED FOR UNKNOWN INDICATION
     Route: 065
  2. METHYLPREDNISOLONE [Concomitant]

REACTIONS (2)
  - Drug intolerance [Unknown]
  - Dermatitis allergic [Unknown]
